FAERS Safety Report 25086546 (Version 1)
Quarter: 2025Q1

REPORT INFORMATION
  Report Type: Spontaneous
  Country: PL (occurrence: PL)
  Receive Date: 20250317
  Receipt Date: 20250317
  Transmission Date: 20250409
  Serious: Yes (Other)
  Sender: MERCK SHARP & DOHME LLC
  Company Number: None

PATIENT
  Age: 1 Year
  Sex: Male

DRUGS (3)
  1. M-M-RVAXPRO [Suspect]
     Active Substance: MEASLES VIRUS STRAIN ENDERS^ ATTENUATED EDMONSTON LIVE ANTIGEN\MUMPS VIRUS STRAIN B LEVEL JERYL LYNN
     Indication: Immunisation
     Route: 030
     Dates: start: 20240419, end: 20240419
  2. STERILE DILUENT (WATER) [Suspect]
     Active Substance: WATER
     Indication: Immunisation
     Dates: start: 20240419, end: 20240419
  3. STERILE DILUENT (WATER) [Suspect]
     Active Substance: WATER
     Indication: Immunisation
     Route: 030

REACTIONS (7)
  - Swelling [Unknown]
  - Rash morbilliform [Unknown]
  - Rash [Unknown]
  - Hypersensitivity [Unknown]
  - Diarrhoea [Unknown]
  - Decreased appetite [Unknown]
  - Somnolence [Unknown]

NARRATIVE: CASE EVENT DATE: 20240401
